APPROVED DRUG PRODUCT: INDOMETHACIN
Active Ingredient: INDOMETHACIN
Strength: 75MG
Dosage Form/Route: CAPSULE, EXTENDED RELEASE;ORAL
Application: A202572 | Product #001
Applicant: WATSON LABORATORIES INC
Approved: Dec 9, 2013 | RLD: No | RS: No | Type: DISCN